FAERS Safety Report 13167076 (Version 1)
Quarter: 2017Q1

REPORT INFORMATION
  Report Type: Spontaneous
  Country: US (occurrence: US)
  Receive Date: 20170131
  Receipt Date: 20170131
  Transmission Date: 20170428
  Serious: Yes (Hospitalization)
  Sender: FDA-Public Use
  Company Number: US-NOVOPROD-528635

PATIENT
  Age: 28 Year
  Sex: Female
  Weight: 113.38 kg

DRUGS (3)
  1. NOVOLOG [Suspect]
     Active Substance: INSULIN ASPART
     Indication: TYPE 1 DIABETES MELLITUS
     Dosage: UNK
     Route: 058
     Dates: start: 2007
  2. NOVOLOG [Suspect]
     Active Substance: INSULIN ASPART
     Dosage: BOLUSES
     Route: 058
     Dates: start: 20170105, end: 20170105
  3. NOVOLOG [Suspect]
     Active Substance: INSULIN ASPART
     Dosage: 10 U, SINGLE
     Route: 058
     Dates: start: 20170107, end: 20170107

REACTIONS (4)
  - Dehydration [Recovered/Resolved]
  - Blood glucose increased [Recovered/Resolved]
  - Product quality issue [Recovered/Resolved]
  - Blood glucose increased [Recovered/Resolved]

NARRATIVE: CASE EVENT DATE: 20170105
